FAERS Safety Report 20446413 (Version 2)
Quarter: 2022Q4

REPORT INFORMATION
  Report Type: Spontaneous
  Country: JP (occurrence: JP)
  Receive Date: 20220208
  Receipt Date: 20221214
  Transmission Date: 20230113
  Serious: Yes (Hospitalization, Other)
  Sender: FDA-Public Use
  Company Number: JP-SAKK-2021SA200741AA

PATIENT
  Age: 7 Month
  Sex: Male
  Weight: 7.58 kg

DRUGS (9)
  1. SABRIL [Suspect]
     Active Substance: VIGABATRIN
     Indication: Infantile spasms
     Dosage: 200 MG/DAY, BID
     Route: 048
     Dates: start: 20200203, end: 20200206
  2. SABRIL [Suspect]
     Active Substance: VIGABATRIN
     Dosage: 380 MG/DAY, BID
     Route: 048
     Dates: start: 20200206, end: 20200209
  3. SABRIL [Suspect]
     Active Substance: VIGABATRIN
     Dosage: 600 MG/DAY, BID
     Route: 048
     Dates: start: 20200212, end: 20200218
  4. SABRIL [Suspect]
     Active Substance: VIGABATRIN
     Dosage: 800 MG/DAY, BID
     Route: 048
     Dates: start: 20200218, end: 20200312
  5. SABRIL [Suspect]
     Active Substance: VIGABATRIN
     Dosage: 1000 MG/DAY, BID
     Route: 048
     Dates: start: 20200312, end: 20200402
  6. SABRIL [Suspect]
     Active Substance: VIGABATRIN
     Dosage: 1100 MG/DAY, BID
     Route: 048
     Dates: start: 20200402, end: 20200501
  7. SABRIL [Suspect]
     Active Substance: VIGABATRIN
     Dosage: 1200 MG/DAY, BID
     Route: 048
     Dates: start: 20200501, end: 20200501
  8. SABRIL [Suspect]
     Active Substance: VIGABATRIN
     Dosage: 1100 MG/DAY, BID
     Route: 048
     Dates: start: 20200502
  9. SABRIL [Suspect]
     Active Substance: VIGABATRIN
     Dosage: THE DOSE WAS BEING TAPERED FOR DISCONTINUATION
     Route: 048

REACTIONS (2)
  - Gastrostomy [Unknown]
  - Pneumonia [Unknown]
